FAERS Safety Report 6295088-X (Version None)
Quarter: 2009Q3

REPORT INFORMATION
  Report Type: 
  Country: None (occurrence: None)
  Receive Date: 20090730
  Receipt Date: 20090714
  Transmission Date: 20100115
  Serious: Yes (Hospitalization)
  Sender: FDA-Public Use
  Company Number: 8048936

PATIENT
  Age: 19 Year
  Sex: Male
  Weight: 56 kg

DRUGS (5)
  1. CDP870 [Suspect]
     Indication: CROHN'S DISEASE
     Dosage: 400 MG /M SC
     Route: 058
     Dates: start: 20090421, end: 20090505
  2. PREDNISONE [Concomitant]
  3. FERROUS SULFATE TAB [Concomitant]
  4. CALCIUM [Concomitant]
  5. VITAMIN D [Concomitant]

REACTIONS (4)
  - ABDOMINAL ABSCESS [None]
  - CROHN'S DISEASE [None]
  - DISEASE PROGRESSION [None]
  - PERIRECTAL ABSCESS [None]
